FAERS Safety Report 16589736 (Version 1)
Quarter: 2019Q3

REPORT INFORMATION
  Report Type: Other
  Country: US (occurrence: US)
  Receive Date: 20190718
  Receipt Date: 20190718
  Transmission Date: 20191004
  Serious: No
  Sender: FDA-Public Use
  Company Number: US-SWEDISH ORPHAN BIOVITRUM-2019US0797

PATIENT
  Sex: Male

DRUGS (7)
  1. FLOMAX [Concomitant]
     Active Substance: TAMSULOSIN HYDROCHLORIDE
  2. OXYCODONE [Concomitant]
     Active Substance: OXYCODONE
  3. CYMBALTA [Concomitant]
     Active Substance: DULOXETINE HYDROCHLORIDE
  4. PREDNISONE. [Concomitant]
     Active Substance: PREDNISONE
  5. KINERET [Suspect]
     Active Substance: ANAKINRA
     Indication: POLYMYALGIA RHEUMATICA
     Route: 058
     Dates: start: 20190318
  6. BACLOFEN. [Concomitant]
     Active Substance: BACLOFEN
  7. LOVENOX [Concomitant]
     Active Substance: ENOXAPARIN SODIUM

REACTIONS (4)
  - Pruritus [Unknown]
  - Off label use [Unknown]
  - Injection site bruising [Unknown]
  - Injection site erythema [Unknown]
